FAERS Safety Report 17031882 (Version 2)
Quarter: 2019Q4

REPORT INFORMATION
  Report Type: Report from Study
  Country: US (occurrence: US)
  Receive Date: 20191114
  Receipt Date: 20191213
  Transmission Date: 20200122
  Serious: Yes (Hospitalization)
  Sender: FDA-Public Use
  Company Number: US-ACTELION-A-NJ2019-197916

PATIENT
  Sex: Female

DRUGS (2)
  1. ADEMPAS [Concomitant]
     Active Substance: RIOCIGUAT
  2. OPSUMIT [Suspect]
     Active Substance: MACITENTAN
     Indication: PULMONARY ARTERIAL HYPERTENSION
     Dosage: 10 MG, QD
     Route: 048
     Dates: start: 20191004, end: 20191101

REACTIONS (8)
  - Pulmonary oedema [Unknown]
  - Confusional state [Unknown]
  - Swelling [Recovered/Resolved]
  - Dyspnoea [Unknown]
  - Rales [Unknown]
  - Breath sounds abnormal [Unknown]
  - Condition aggravated [Recovered/Resolved]
  - Oxygen saturation decreased [Unknown]
